FAERS Safety Report 6386954-5 (Version None)
Quarter: 2009Q4

REPORT INFORMATION
  Report Type: 
  Country: None (occurrence: None)
  Receive Date: 20091002
  Receipt Date: 20090928
  Transmission Date: 20100525
  Serious: Yes (Other)
  Sender: FDA-Public Use
  Company Number: CA-ABBOTT-09P-028-0599776-00

PATIENT
  Sex: Male
  Weight: 94.886 kg

DRUGS (8)
  1. LUPRON DEPOT [Suspect]
     Indication: PROSTATE CANCER
     Dates: start: 20081012
  2. INSULIN [Concomitant]
     Indication: DRUG USE FOR UNKNOWN INDICATION
     Dosage: 30/70 BID
  3. LIPITOR [Concomitant]
     Indication: DRUG USE FOR UNKNOWN INDICATION
  4. PARIET [Concomitant]
     Indication: DRUG USE FOR UNKNOWN INDICATION
  5. LASIX [Concomitant]
     Indication: DRUG USE FOR UNKNOWN INDICATION
  6. NORVASC [Concomitant]
     Indication: DRUG USE FOR UNKNOWN INDICATION
  7. ASPIRIN [Concomitant]
     Indication: DRUG USE FOR UNKNOWN INDICATION
  8. ADALACTONE [Concomitant]
     Indication: DRUG USE FOR UNKNOWN INDICATION

REACTIONS (2)
  - CATARACT [None]
  - MACULAR DEGENERATION [None]
